FAERS Safety Report 25529417 (Version 1)
Quarter: 2025Q3

REPORT INFORMATION
  Report Type: Spontaneous
  Country: US (occurrence: None)
  Receive Date: 20250707
  Receipt Date: 20250707
  Transmission Date: 20251020
  Serious: No
  Sender: FDA-CTU
  Company Number: None

PATIENT
  Age: 70 Year
  Sex: Female
  Weight: 68.4 kg

DRUGS (6)
  1. EZETIMIBE [Suspect]
     Active Substance: EZETIMIBE
     Indication: Blood cholesterol increased
     Route: 048
     Dates: start: 20250610, end: 20250706
  2. GABAPENTIN [Concomitant]
     Active Substance: GABAPENTIN
  3. B-50 [Concomitant]
  4. DIETARY SUPPLEMENT [Concomitant]
     Active Substance: DIETARY SUPPLEMENT
  5. MAGNESIUM ASPOROTATE [Concomitant]
  6. HAWTHORN EXTRACT [Concomitant]

REACTIONS (3)
  - Arthralgia [None]
  - Tendon discomfort [None]
  - Arthralgia [None]

NARRATIVE: CASE EVENT DATE: 20250627
